FAERS Safety Report 4522582-1 (Version None)
Quarter: 2004Q4

REPORT INFORMATION
  Report Type: 
  Country: None (occurrence: None)
  Receive Date: 20041207
  Receipt Date: 20041124
  Transmission Date: 20050328
  Serious: Yes (Hospitalization)
  Sender: FDA-Public Use
  Company Number: 2004099460

PATIENT
  Age: 73 Year
  Sex: Female

DRUGS (1)
  1. FELDENE [Suspect]
     Indication: PHLEBITIS
     Dosage: 1 DOSE FORM DAILY ORAL
     Route: 048
     Dates: start: 20040905, end: 20040919

REACTIONS (7)
  - FALL [None]
  - GASTROINTESTINAL NECROSIS [None]
  - GASTROINTESTINAL ULCER [None]
  - HAEMOGLOBIN DECREASED [None]
  - HIATUS HERNIA [None]
  - MALAISE [None]
  - MELAENA [None]
